FAERS Safety Report 8079772-3 (Version None)
Quarter: 2012Q1

REPORT INFORMATION
  Report Type: 
  Country: None (occurrence: None)
  Receive Date: 20120128
  Receipt Date: 20110719
  Transmission Date: 20120608
  Serious: No
  Sender: FDA-Public Use
  Company Number: US-ABBOTT-11P-163-0840582-00

PATIENT
  Age: 60 Year
  Sex: Female

DRUGS (23)
  1. MS CONTIN [Concomitant]
     Indication: PAIN
  2. PERCOCET [Concomitant]
     Indication: PAIN
  3. FISH OIL [Concomitant]
     Indication: PRODUCT USED FOR UNKNOWN INDICATION
  4. FOLIC ACID [Concomitant]
     Indication: VITAMIN SUPPLEMENTATION
  5. LORATADINE [Concomitant]
     Indication: HYPERSENSITIVITY
  6. ASPIRIN [Concomitant]
     Indication: CARDIAC DISORDER
     Dosage: LOW DOSE
  7. XANAX [Concomitant]
     Indication: PRODUCT USED FOR UNKNOWN INDICATION
  8. SYMBICORT [Concomitant]
     Indication: HYPERSENSITIVITY
  9. CALCIPOTRIENE AND BETAMETHASONE DIPROPIONATE [Concomitant]
     Indication: PSORIASIS
  10. HUMIRA [Suspect]
     Dates: start: 20100101, end: 20101201
  11. HUMIRA [Suspect]
     Dates: start: 20110601
  12. SINGULAIR [Concomitant]
     Indication: HYPERSENSITIVITY
  13. TOPAMAX [Concomitant]
     Indication: MENTAL DISORDER
  14. CALCIUM PLUS VITAMIN D [Concomitant]
     Indication: PRODUCT USED FOR UNKNOWN INDICATION
  15. MULTI-VITAMINS [Concomitant]
     Indication: VITAMIN SUPPLEMENTATION
  16. GLUCOSAMINE + CHONDROITIN [Concomitant]
     Indication: PRODUCT USED FOR UNKNOWN INDICATION
  17. SULFAMETHOXAZOLE [Concomitant]
     Indication: HYPERSENSITIVITY
  18. ASMANEX INHALER [Concomitant]
     Indication: HYPERSENSITIVITY
  19. HUMIRA [Suspect]
     Indication: PSORIATIC ARTHROPATHY
     Dates: end: 20100601
  20. PROAIR HFA [Concomitant]
     Indication: HYPERSENSITIVITY
  21. LOVAZA [Concomitant]
     Indication: PRODUCT USED FOR UNKNOWN INDICATION
  22. BIOTIN [Concomitant]
     Indication: PRODUCT USED FOR UNKNOWN INDICATION
  23. ANTIDEPRESSANTS [Concomitant]
     Indication: PRODUCT USED FOR UNKNOWN INDICATION

REACTIONS (3)
  - INJECTION SITE PAIN [None]
  - ANXIETY [None]
  - WHITE BLOOD CELL COUNT INCREASED [None]
